FAERS Safety Report 12262649 (Version 1)
Quarter: 2016Q2

REPORT INFORMATION
  Report Type: Spontaneous
  Country: US (occurrence: US)
  Receive Date: 20160413
  Receipt Date: 20160413
  Transmission Date: 20160815
  Serious: No
  Sender: FDA-Public Use
  Company Number: US-009507513-1603USA012654

PATIENT
  Sex: Female

DRUGS (3)
  1. SINGULAIR [Suspect]
     Active Substance: MONTELUKAST SODIUM
     Dosage: ONE TABLET IN THE MORNING EVERYDAY AND A SECOND TABLET IN THE EVENING AS NEEDED
  2. SINGULAIR [Suspect]
     Active Substance: MONTELUKAST SODIUM
     Indication: ASTHMA
     Dosage: ONCE DAILY
     Route: 048
  3. SINGULAIR [Suspect]
     Active Substance: MONTELUKAST SODIUM
     Indication: HYPERSENSITIVITY

REACTIONS (3)
  - Adverse event [Unknown]
  - Product use issue [Unknown]
  - Inappropriate schedule of drug administration [Unknown]
